FAERS Safety Report 5335820-2 (Version None)
Quarter: 2007Q2

REPORT INFORMATION
  Report Type: 
  Country: None (occurrence: None)
  Receive Date: 20070322
  Receipt Date: 20061106
  Transmission Date: 20071010
  Serious: No
  Sender: FDA-Public Use
  Company Number: US-CVT-062274

PATIENT
  Age: 73 Year
  Sex: Male
  Weight: 91.2 kg

DRUGS (14)
  1. RANEXA [Suspect]
     Indication: ANGINA PECTORIS
     Dosage: 500 MG, BID, ORAL
     Route: 048
     Dates: start: 20061031, end: 20061102
  2. PLAVIX [Concomitant]
  3. ASPIRIN [Concomitant]
  4. DIOVAN [Concomitant]
  5. IMDUR [Concomitant]
  6. TRICOR [Concomitant]
  7. ZOCOR [Concomitant]
  8. FLOMAX [Concomitant]
  9. LASIX [Concomitant]
  10. TRENTAL [Concomitant]
  11. INDOCIN [Concomitant]
  12. NORMODYNE [Concomitant]
  13. ALLOPURINOL [Concomitant]
  14. NITROGLYCERIN (CLYCERYL TRINITRATE) [Concomitant]

REACTIONS (3)
  - DIARRHOEA [None]
  - NAUSEA [None]
  - VOMITING [None]
